FAERS Safety Report 23918761 (Version 1)
Quarter: 2024Q2

REPORT INFORMATION
  Report Type: Spontaneous
  Country: GB (occurrence: GB)
  Receive Date: 20240530
  Receipt Date: 20240530
  Transmission Date: 20240716
  Serious: Yes (Other)
  Sender: FDA-Public Use
  Company Number: None

PATIENT
  Age: 54 Year
  Sex: Male

DRUGS (3)
  1. PREGABALIN [Suspect]
     Active Substance: PREGABALIN
     Indication: Product used for unknown indication
     Dosage: 150 MILLIGRAM, QD (CAPSULE)
     Route: 065
     Dates: start: 20231108, end: 20231126
  2. COCODAMOL [Concomitant]
     Active Substance: ACETAMINOPHEN\CODEINE PHOSPHATE
     Indication: Product used for unknown indication
     Dosage: UNK, PRN (30MG/500MG, ONE OR TWO TO BE TAKEN FOUR TIMES A DAY PRN- PT STATES TAKES 2 EVERY 4 HOURS)
     Route: 065
  3. BUTYLSCOPOLAMINE BROMIDE [Concomitant]
     Active Substance: BUTYLSCOPOLAMINE BROMIDE
     Indication: Product used for unknown indication
     Dosage: UNK, TID (1 OR 2 TO BE TAKEN TDS PT STATES WAS NOT TAKING PRIOR TO HOSPITAL ADMISSION)
     Route: 065

REACTIONS (3)
  - Gamma-glutamyltransferase increased [Unknown]
  - Hepatitis [Recovered/Resolved]
  - Alanine aminotransferase increased [Unknown]
